FAERS Safety Report 8061018-3 (Version None)
Quarter: 2012Q1

REPORT INFORMATION
  Report Type: 
  Country: None (occurrence: None)
  Receive Date: 20120120
  Receipt Date: 20120111
  Transmission Date: 20120608
  Serious: Yes (Hospitalization)
  Sender: FDA-Public Use
  Company Number: US-ASTRAZENECA-2012SE02110

PATIENT
  Age: 31 Year
  Sex: Male
  Weight: 88.5 kg

DRUGS (5)
  1. ZOLOFT [Concomitant]
  2. SEROQUEL [Suspect]
     Indication: BIPOLAR DISORDER
     Route: 048
     Dates: start: 20020101
  3. HYDROXYZINE [Concomitant]
  4. PROPRANOLOL [Concomitant]
  5. XANAX [Concomitant]

REACTIONS (2)
  - DRUG DOSE OMISSION [None]
  - ROAD TRAFFIC ACCIDENT [None]
